FAERS Safety Report 24260957 (Version 1)
Quarter: 2024Q3

REPORT INFORMATION
  Report Type: Spontaneous
  Country: CN (occurrence: CN)
  Receive Date: 20240829
  Receipt Date: 20240829
  Transmission Date: 20241016
  Serious: Yes (Death, Hospitalization)
  Sender: STRIDES
  Company Number: CN-STRIDES ARCOLAB LIMITED-2024SP010794

PATIENT
  Age: 53 Year
  Sex: Male

DRUGS (17)
  1. OMEPRAZOLE [Suspect]
     Active Substance: OMEPRAZOLE
     Indication: Product used for unknown indication
     Dosage: UNK
     Route: 065
  2. PANTOPRAZOLE SODIUM [Suspect]
     Active Substance: PANTOPRAZOLE SODIUM
     Indication: Product used for unknown indication
     Dosage: UNK
     Route: 065
  3. DICLOFENAC SODIUM [Suspect]
     Active Substance: DICLOFENAC\DICLOFENAC SODIUM
     Indication: Abdominal pain
     Dosage: UNK
     Route: 030
  4. LIDOCAINE [Suspect]
     Active Substance: LIDOCAINE
     Indication: Abdominal pain
     Dosage: 2 MILLILITER
     Route: 030
  5. DROTAVERINE [Concomitant]
     Active Substance: DROTAVERINE
     Indication: Abdominal pain
     Dosage: 80 MILLIGRAM, BID (80 MG VIA INTRAVENOUS DRIP OF 5% GLUCOSE INJECTION 250 ML)
     Route: 042
  6. DEXAMETHASONE SODIUM PHOSPHATE [Concomitant]
     Active Substance: DEXAMETHASONE PHOSPHATE\DEXAMETHASONE SODIUM PHOSPHATE
     Indication: Hormone therapy
     Dosage: 5 MILLIGRAM (5 MG VIA INTRAVENOUS INJECTION OF 0.9% SODIUM CHLORIDE INJECTION 5 ML)
     Route: 042
  7. DEXAMETHASONE SODIUM PHOSPHATE [Concomitant]
     Active Substance: DEXAMETHASONE PHOSPHATE\DEXAMETHASONE SODIUM PHOSPHATE
     Dosage: 5 MILLIGRAM (5 MG VIA INTRAVENOUS INJECTION OF 0.9% SODIUM CHLORIDE INJECTION 5 ML)
     Route: 042
  8. METHYLPREDNISOLONE SODIUM SUCCINATE [Concomitant]
     Active Substance: METHYLPREDNISOLONE SODIUM SUCCINATE
     Indication: Hormone therapy
     Dosage: 40 MILLIGRAM (40 MG VIA IV DRIP OF 0.9% SODIUM CHLORIDE INJECTION 100 ML)
     Route: 042
  9. SODIUM CHLORIDE [Concomitant]
     Active Substance: SODIUM CHLORIDE
     Indication: Product used for unknown indication
     Dosage: 100 MILLILITER, QD (DRIP)
     Route: 041
  10. SODIUM CHLORIDE [Concomitant]
     Active Substance: SODIUM CHLORIDE
     Dosage: 5 MILLILITER
     Route: 042
  11. SODIUM CHLORIDE [Concomitant]
     Active Substance: SODIUM CHLORIDE
     Dosage: 100 MILLILITER, QD (DRIP)
     Route: 041
  12. SODIUM CHLORIDE [Concomitant]
     Active Substance: SODIUM CHLORIDE
     Dosage: 250 MILLILITER (DRIP)
     Route: 041
  13. RABEPRAZOLE SODIUM [Concomitant]
     Active Substance: RABEPRAZOLE SODIUM
     Indication: Product used for unknown indication
     Dosage: 20 MILLIGRAM, OD (20MG WAS GIVEN THROUGH IV DRIP OF 0.9% 100ML OF SODIUM-CHLORIDE INJECTION ONCE DAI
     Route: 042
  14. SODIUM [Concomitant]
     Active Substance: SODIUM
     Indication: Product used for unknown indication
     Dosage: UNK
     Route: 065
  15. POTASSIUM [Concomitant]
     Active Substance: POTASSIUM
     Indication: Product used for unknown indication
     Dosage: UNK
     Route: 065
  16. MAGNESIUM [Concomitant]
     Active Substance: MAGNESIUM
     Indication: Product used for unknown indication
     Dosage: UNK
     Route: 065
  17. CALCIUM [Concomitant]
     Active Substance: CALCIUM
     Indication: Product used for unknown indication
     Dosage: UNK
     Route: 065

REACTIONS (4)
  - Hypoglycaemia [Fatal]
  - Loss of consciousness [Fatal]
  - Cardiac arrest [Fatal]
  - Respiratory arrest [Fatal]
